FAERS Safety Report 9347076 (Version 3)
Quarter: 2013Q4

REPORT INFORMATION
  Report Type: Spontaneous
  Country: FR (occurrence: FR)
  Receive Date: 20130613
  Receipt Date: 20131202
  Transmission Date: 20140711
  Serious: Yes (Life-Threatening, Hospitalization)
  Sender: FDA-Public Use
  Company Number: FR-GLAXOSMITHKLINE-B0896745A

PATIENT
  Age: 83 Year
  Sex: Female

DRUGS (12)
  1. ARIXTRA [Suspect]
     Indication: PULMONARY EMBOLISM
     Dosage: 7.5MG PER DAY
     Route: 058
     Dates: start: 201211, end: 20130508
  2. KEPPRA [Concomitant]
  3. ZELITREX [Concomitant]
  4. ESOMEPRAZOLE [Concomitant]
  5. ALLOPURINOL [Concomitant]
  6. IMOVANE [Concomitant]
  7. HYDROCORTISONE [Concomitant]
  8. SPECIAFOLDINE [Concomitant]
  9. DIFFU K [Concomitant]
  10. BACTRIM [Concomitant]
     Dates: end: 20130429
  11. METHOTREXATE [Concomitant]
     Indication: CENTRAL NERVOUS SYSTEM LYMPHOMA
  12. ARACYTINE [Concomitant]
     Indication: CENTRAL NERVOUS SYSTEM LYMPHOMA

REACTIONS (11)
  - Abdominal wall haematoma [Recovered/Resolved]
  - Anaemia [Recovered/Resolved]
  - Incorrect drug administration duration [Unknown]
  - Vomiting [Recovered/Resolved]
  - Asthenia [Recovered/Resolved]
  - Flank pain [Recovered/Resolved]
  - Abdominal pain upper [Recovered/Resolved]
  - Dysuria [Recovered/Resolved]
  - Disorientation [Recovered/Resolved]
  - Somnolence [Recovered/Resolved]
  - Gastric haemorrhage [Recovered/Resolved]
